FAERS Safety Report 8884680 (Version 1)
Quarter: 2012Q4

REPORT INFORMATION
  Report Type: 
  Country: JP (occurrence: JP)
  Receive Date: 20121102
  Receipt Date: 20121102
  Transmission Date: 20130627
  Serious: Yes (Hospitalization)
  Sender: FDA-Public Use
  Company Number: JP-BAYER-2012-111991

PATIENT
  Age: 84 Year
  Sex: Male
  Weight: 55 kg

DRUGS (6)
  1. ACETYLSALICYLIC ACID({=100 MG) [Suspect]
     Indication: ISCHAEMIC HEART DISEASE PROPHYLAXIS
     Dosage: UNK
     Route: 048
  2. CYCLOPHOSPHAMIDE [Concomitant]
     Indication: CHEMOTHERAPY
     Dosage: Daily dose 1.2 mg
     Dates: start: 201008
  3. DOXORUBICIN HYDROCHLORIDE [Concomitant]
     Indication: CHEMOTHERAPY
     Dosage: Daily dose 680 mg
     Dates: start: 201008
  4. VINCRISTINE SULFATE [Concomitant]
     Indication: CHEMOTHERAPY
     Dosage: Daily dose 46 mg
     Dates: start: 201008
  5. PREDNISOLONE [Suspect]
     Indication: CHEMOTHERAPY
     Dosage: Daily dose 50 mg
     Route: 048
     Dates: start: 201008
  6. RITUXIMAB [Concomitant]
     Indication: CHEMOTHERAPY

REACTIONS (2)
  - Large intestine perforation [Recovering/Resolving]
  - Abdominal pain [Recovering/Resolving]
